FAERS Safety Report 11883922 (Version 2)
Quarter: 2016Q1

REPORT INFORMATION
  Report Type: Spontaneous
  Country: JP (occurrence: JP)
  Receive Date: 20160102
  Receipt Date: 20160213
  Transmission Date: 20160526
  Serious: Yes (Hospitalization, Other)
  Sender: FDA-Public Use
  Company Number: JP-AMGEN-JPNSP2015140821

PATIENT
  Age: 63 Year
  Sex: Male
  Weight: 64.8 kg

DRUGS (13)
  1. VECTIBIX [Suspect]
     Active Substance: PANITUMUMAB
     Dosage: 350 MG, Q2WK
     Route: 041
     Dates: start: 20151006, end: 20151202
  2. VECTIBIX [Suspect]
     Active Substance: PANITUMUMAB
     Indication: RECTAL CANCER
     Dosage: 350 MG, Q2WK
     Route: 041
     Dates: start: 20150407, end: 20150721
  3. IRINOTECAN HYDROCHLORIDE. [Suspect]
     Active Substance: IRINOTECAN HYDROCHLORIDE
     Indication: RECTAL CANCER
     Dosage: 200 MG, Q2WEEKS
     Route: 041
     Dates: start: 20151006, end: 20151202
  4. 5-FU                               /00098801/ [Concomitant]
     Active Substance: FLUOROURACIL
     Indication: RECTAL CANCER
     Dosage: 600 MG, Q2WEEKS
     Route: 040
     Dates: start: 20150407, end: 20151202
  5. 5-FU                               /00098801/ [Concomitant]
     Active Substance: FLUOROURACIL
     Dosage: 3750 MG, Q2WEEKS
     Route: 041
     Dates: start: 20150407, end: 20151204
  6. ISOVORIN                           /06682103/ [Concomitant]
     Active Substance: LEUCOVORIN CALCIUM
     Indication: RECTAL CANCER
     Dosage: 300 MG, Q2WEEKS
     Route: 041
     Dates: start: 20150407, end: 20151202
  7. RABEPRAZOLE NA [Concomitant]
     Active Substance: RABEPRAZOLE SODIUM
     Indication: PROPHYLAXIS AGAINST GASTROINTESTINAL ULCER
     Dosage: 10 MG, QD
     Route: 048
     Dates: end: 20151214
  8. METHYCOBAL [Concomitant]
     Active Substance: METHYLCOBALAMIN
     Indication: CANCER PAIN
     Dosage: 500 MUG, TID
     Route: 048
     Dates: start: 20150623, end: 20151214
  9. NAUZELIN [Concomitant]
     Active Substance: DOMPERIDONE
     Indication: NAUSEA
     Dosage: 10 MG, TID
     Route: 048
     Dates: start: 20150623, end: 20151214
  10. TRAMCET [Concomitant]
     Active Substance: ACETAMINOPHEN\TRAMADOL
     Indication: CANCER PAIN
     Dosage: 1 DF, BID
     Route: 048
     Dates: start: 20150623, end: 20151214
  11. OXALIPLATIN. [Concomitant]
     Active Substance: OXALIPLATIN
     Indication: RECTAL CANCER
     Dosage: UNK UNK, Q2WEEKS
     Route: 041
     Dates: start: 20150407
  12. OPALMON [Concomitant]
     Active Substance: LIMAPROST
     Indication: CANCER PAIN
     Dosage: 5 MUG, TID
     Route: 048
     Dates: start: 20150623, end: 20151214
  13. MICARDIS [Concomitant]
     Active Substance: TELMISARTAN
     Indication: HYPERTENSION
     Dosage: 40 MG, QD
     Route: 048
     Dates: end: 20151214

REACTIONS (2)
  - Interstitial lung disease [Recovered/Resolved]
  - Paronychia [Unknown]

NARRATIVE: CASE EVENT DATE: 20151214
